FAERS Safety Report 20617071 (Version 1)
Quarter: 2022Q1

REPORT INFORMATION
  Report Type: Spontaneous
  Country: US (occurrence: None)
  Receive Date: 20220318
  Receipt Date: 20220318
  Transmission Date: 20220423
  Serious: Yes (Hospitalization)
  Sender: FDA-Public Use
  Company Number: None

PATIENT
  Age: 43 Year
  Sex: Female
  Weight: 87 kg

DRUGS (1)
  1. INVANZ [Suspect]
     Active Substance: ERTAPENEM SODIUM
     Indication: Colitis
     Dosage: FREQUENCY : DAILY;?
     Route: 042
     Dates: start: 20220224, end: 20220307

REACTIONS (9)
  - Acute kidney injury [None]
  - Pyrexia [None]
  - Musculoskeletal stiffness [None]
  - Arthralgia [None]
  - Decreased appetite [None]
  - Serum sickness [None]
  - Systemic inflammatory response syndrome [None]
  - Anaemia [None]
  - Leukocytosis [None]

NARRATIVE: CASE EVENT DATE: 20220306
